FAERS Safety Report 24117255 (Version 1)
Quarter: 2024Q3

REPORT INFORMATION
  Report Type: Spontaneous
  Country: NL (occurrence: NL)
  Receive Date: 20240722
  Receipt Date: 20240722
  Transmission Date: 20241016
  Serious: Yes (Hospitalization)
  Sender: BOEHRINGER INGELHEIM
  Company Number: None

PATIENT
  Age: 73 Year
  Sex: Female
  Weight: 62 kg

DRUGS (1)
  1. TELMISARTAN [Suspect]
     Active Substance: TELMISARTAN
     Indication: Blood pressure systolic increased
     Dosage: 40 MG NAAR 80 OPGEHOOGD, OCHTENDDOSIA VAN 40 MG OM 14.30 MET NOGEENS 40 MG?40MG INCREASED TO 80, MOR
     Dates: start: 20240703, end: 20240704

REACTIONS (5)
  - Hypertension [Recovered/Resolved]
  - Arrhythmia [Recovered/Resolved]
  - Supraventricular extrasystoles [Recovered/Resolved]
  - Tachycardia [Recovered/Resolved]
  - Drug ineffective [Unknown]
